FAERS Safety Report 8611934 (Version 2)
Quarter: 2012Q4

REPORT INFORMATION
  Report Type: 
  Country: JP (occurrence: JP)
  Receive Date: 20120613
  Receipt Date: 20120928
  Transmission Date: 20130627
  Serious: Yes (Other)
  Sender: FDA-Public Use
  Company Number: JP-SANOFI-AVENTIS-2011SA083567

PATIENT
  Age: 75 Year
  Sex: Female
  Weight: 43 kg

DRUGS (9)
  1. CLEXANE [Suspect]
     Indication: TOTAL HIP REPLACEMENT
     Route: 058
     Dates: start: 20111209, end: 20111209
  2. TEMOCAPRIL [Concomitant]
     Route: 048
  3. ATORVASTATIN [Concomitant]
     Dosage: strength: 5 mg
     Route: 048
  4. AMLODIPINE [Concomitant]
     Route: 048
  5. PIOGLITAZONE [Concomitant]
     Route: 048
  6. STARSIS [Concomitant]
     Route: 048
  7. CEFAZOLIN SODIUM [Concomitant]
     Indication: INFECTION PROPHYLAXIS
     Dosage: 1 vial twice daily
     Route: 041
     Dates: start: 20111208, end: 20111209
  8. CEFAZOLIN SODIUM [Concomitant]
     Indication: INFECTION PROPHYLAXIS
     Dosage: 1 via trice daily
     Route: 041
     Dates: start: 20111207, end: 20111207
  9. ROPION [Concomitant]
     Indication: POSTOPERATIVE PAIN RELIEF
     Dosage: 1 AMPULE DAILY
strength: 50mg/5ml
     Route: 041
     Dates: start: 20111207, end: 20111208

REACTIONS (4)
  - White blood cell count decreased [Recovered/Resolved]
  - Hepatic function abnormal [Recovered/Resolved]
  - Gamma-glutamyltransferase increased [Recovered/Resolved]
  - Aspartate aminotransferase increased [Recovered/Resolved]
